FAERS Safety Report 6081659-2 (Version None)
Quarter: 2009Q1

REPORT INFORMATION
  Report Type: 
  Country: None (occurrence: None)
  Receive Date: 20090218
  Receipt Date: 20090209
  Transmission Date: 20090719
  Serious: Yes (Hospitalization)
  Sender: FDA-Public Use
  Company Number: DE-ASTRAZENECA-2009PK00571

PATIENT
  Age: 48 Year
  Sex: Female
  Weight: 69 kg

DRUGS (2)
  1. ARIMIDEX [Suspect]
     Indication: BREAST CANCER
     Route: 048
     Dates: start: 20080804
  2. TAMOXIFEN CITRATE [Suspect]
     Indication: BREAST CANCER
     Route: 048
     Dates: start: 20080201, end: 20080804

REACTIONS (1)
  - ENDOMETRIAL HYPERPLASIA [None]
